FAERS Safety Report 7050160-1 (Version None)
Quarter: 2010Q4

REPORT INFORMATION
  Report Type: 
  Country: None (occurrence: None)
  Receive Date: 20101018
  Receipt Date: 20101006
  Transmission Date: 20110411
  Serious: Yes (Other)
  Sender: FDA-Public Use
  Company Number: US-ELI_LILLY_AND_COMPANY-US201010001399

PATIENT
  Age: 30 Year
  Sex: Male

DRUGS (3)
  1. GEMCITABINE HCL [Suspect]
     Indication: HODGKIN'S DISEASE
  2. VINORELBINE [Concomitant]
  3. DOXORUBICIN HCL [Concomitant]

REACTIONS (2)
  - MUSCLE NECROSIS [None]
  - RECALL PHENOMENON [None]
